FAERS Safety Report 5875131-X (Version None)
Quarter: 2008Q3

REPORT INFORMATION
  Report Type: 
  Country: None (occurrence: None)
  Receive Date: 20080909
  Receipt Date: 20080902
  Transmission Date: 20090109
  Serious: Yes (Hospitalization)
  Sender: FDA-Public Use
  Company Number: B0535212A

PATIENT
  Age: 69 Year
  Sex: Male

DRUGS (19)
  1. SERETIDE [Suspect]
     Indication: ASTHMA
     Route: 055
  2. VENTOLIN [Suspect]
     Indication: ASTHMA
     Dosage: 100MCG AS REQUIRED
     Route: 055
  3. AMLODIPINE [Suspect]
     Dosage: 5MG PER DAY
  4. ASPIRIN [Suspect]
     Dosage: 75MG PER DAY
  5. ACETAMINOPHEN W/ CODEINE [Suspect]
     Dosage: 500MG AS REQUIRED
  6. COD LIVER OIL [Suspect]
     Dosage: 2CAP PER DAY
  7. CREON [Suspect]
  8. FRUSEMIDE [Suspect]
     Dosage: 80MG PER DAY
  9. GLUCOSAMINE SULPHATE [Suspect]
  10. GLYCOSIDE [Suspect]
     Dosage: 80MG PER DAY
  11. NITROGLYCERIN [Suspect]
  12. NITROGLYCERIN [Suspect]
     Dosage: 5MG AS REQUIRED
  13. OMEPRAZOLE [Suspect]
     Dosage: 20MG TWICE PER DAY
  14. ACETAMINOPHEN [Suspect]
     Dosage: 500MG AS REQUIRED
  15. MEPERIDINE HCL [Suspect]
     Dosage: 50MG AS REQUIRED
  16. QUININE SULPHATE [Suspect]
     Dosage: 300MG AS REQUIRED
  17. RAMIPRIL [Suspect]
     Dosage: 2.5MG PER DAY
  18. SIMVASTATIN [Suspect]
     Dosage: 20MG PER DAY
  19. WARFARIN SODIUM [Suspect]
     Dosage: 2.5MG PER DAY

REACTIONS (2)
  - ENTEROCOLITIS [None]
  - PNEUMONIA PNEUMOCOCCAL [None]
